FAERS Safety Report 19083431 (Version 1)
Quarter: 2021Q2

REPORT INFORMATION
  Report Type: Spontaneous
  Country: NL (occurrence: NL)
  Receive Date: 20210401
  Receipt Date: 20210401
  Transmission Date: 20210717
  Serious: Yes (Other)
  Sender: FDA-Public Use
  Company Number: NL-MYLANLABS-2021M1019558

PATIENT
  Age: 80 Year
  Sex: Female
  Weight: 44.1 kg

DRUGS (11)
  1. CLOPIDOGREL [Concomitant]
     Active Substance: CLOPIDOGREL BISULFATE
     Dosage: 75 MILLIGRAM (TABLET, 75 MG (MILLIGRAM))
  2. NADROPARINE [Concomitant]
     Active Substance: NADROPARIN
     Dosage: 1 DOSAGE FORM (INJECTION FLUID, 9500 IU / ML (UNITS PER MILLILITER))
  3. MACROGOL [Concomitant]
     Active Substance: POLYETHYLENE GLYCOLS
     Dosage: 1 DOSAGE FORM (POWDER FOR DRINK)
  4. SIMVASTATINE [Concomitant]
     Active Substance: SIMVASTATIN
     Dosage: 40 MILLIGRAM (FILM?COATED TABLET,)
  5. AMLODIPINE [Concomitant]
     Active Substance: AMLODIPINE BESYLATE
     Dosage: 5 MILLIGRAM (TABLET, 5 MG (MILLIGRAM))
  6. TIOTROPIUM [Concomitant]
     Active Substance: TIOTROPIUM
     Dosage: 1 DOSAGE FORM (INHALATION POWDER, 18 ?G (MICROGRAMS)
  7. PANTOPRAZOLE [Suspect]
     Active Substance: PANTOPRAZOLE
     Indication: PROPHYLAXIS
     Dosage: 40 MILLIGRAM, QD (1 X PER DAY 1 PIECE)
     Dates: start: 20201117, end: 20210204
  8. TRIAMCINOLONACETONIDE [Concomitant]
     Active Substance: TRIAMCINOLONE ACETONIDE
     Dosage: 1 DOSAGE FORM (SUSPENSION FOR INJECTION, 40 MG / ML (MILLIGRAMS PER MILLILITER))
  9. CALCIUMCARBONAAT [Concomitant]
     Dosage: 1 DOSAGE FORM (CHEWABLE TABLET, 1.25)
  10. SALBUTAMOL [Concomitant]
     Active Substance: ALBUTEROL
     Dosage: 1 DOSAGE FORM (AEROSOL, 100 ?G/DOSIS (MICROGRAM PER DOSIS))
  11. DENOSUMAB [Concomitant]
     Active Substance: DENOSUMAB
     Dosage: 1 DOSAGE FORM (INJECTION FLUID, 60 MG/ ML (MILLIGRAMS PERMILLILITER))

REACTIONS (5)
  - Diarrhoea [Recovered/Resolved]
  - Confusional state [Recovered/Resolved]
  - Hypocalcaemia [Recovered/Resolved]
  - Hypomagnesaemia [Recovered/Resolved]
  - Hypokalaemia [Recovered/Resolved]

NARRATIVE: CASE EVENT DATE: 20210127
